FAERS Safety Report 23387229 (Version 4)
Quarter: 2024Q4

REPORT INFORMATION
  Report Type: Report from Study
  Country: GB (occurrence: GB)
  Receive Date: 20240110
  Receipt Date: 20241024
  Transmission Date: 20250115
  Serious: Yes (Hospitalization, Other)
  Sender: NOVARTIS
  Company Number: GB-002147023-NVSC2024GB004322

PATIENT
  Sex: Female

DRUGS (2)
  1. KESIMPTA [Suspect]
     Active Substance: OFATUMUMAB
     Indication: Relapsing-remitting multiple sclerosis
     Dosage: 20 MG, QW
     Route: 058
     Dates: start: 20240102
  2. KESIMPTA [Suspect]
     Active Substance: OFATUMUMAB
     Indication: Multiple sclerosis
     Dosage: 20 MG, QMO
     Route: 058
     Dates: start: 20240109

REACTIONS (16)
  - Haematological infection [Unknown]
  - Multiple sclerosis [Not Recovered/Not Resolved]
  - Peripheral coldness [Not Recovered/Not Resolved]
  - Burning sensation [Not Recovered/Not Resolved]
  - Head discomfort [Unknown]
  - Hypoaesthesia [Not Recovered/Not Resolved]
  - Fatigue [Not Recovered/Not Resolved]
  - Sensory loss [Unknown]
  - Lower respiratory tract infection [Unknown]
  - Pseudofolliculitis [Not Recovered/Not Resolved]
  - Pain in extremity [Unknown]
  - Joint stiffness [Unknown]
  - Balance disorder [Unknown]
  - Depressed mood [Unknown]
  - Heavy menstrual bleeding [Unknown]
  - Malaise [Unknown]

NARRATIVE: CASE EVENT DATE: 20240102
